FAERS Safety Report 4875705-9 (Version None)
Quarter: 2006Q1

REPORT INFORMATION
  Report Type: 
  Country: None (occurrence: None)
  Receive Date: 20060105
  Receipt Date: 20051221
  Transmission Date: 20060701
  Serious: Yes (Other)
  Sender: FDA-Public Use
  Company Number: 2005SS000917

PATIENT
  Age: 79 Year
  Sex: Male

DRUGS (1)
  1. BOTULINUM TOXIN TYPE B (BOTULINUM TOXIN TYPE B) [Suspect]
     Indication: HYPERTONIC BLADDER
     Dosage: 5000 U;IM
     Route: 030

REACTIONS (3)
  - CONSTIPATION [None]
  - OFF LABEL USE [None]
  - URINARY RETENTION [None]
